FAERS Safety Report 12787169 (Version 1)
Quarter: 2016Q3

REPORT INFORMATION
  Report Type: Spontaneous
  Country: US (occurrence: US)
  Receive Date: 20160928
  Receipt Date: 20160928
  Transmission Date: 20161109
  Serious: No
  Sender: FDA-Public Use
  Company Number: US-DRREDDYS-USA/USA/16/0080847

PATIENT
  Sex: Male

DRUGS (1)
  1. AMOXICILLIN W/CLAVULANATE POTASSIUM 250 MG/5 ML FOR ORAL SUSPENSION [Suspect]
     Active Substance: AMOXICILLIN\CLAVULANATE POTASSIUM
     Indication: PRODUCT USED FOR UNKNOWN INDICATION
     Dosage: 250 MG/5 ML
     Route: 048

REACTIONS (2)
  - No adverse event [Unknown]
  - Incorrect product storage [Unknown]
